FAERS Safety Report 4758616-9 (Version None)
Quarter: 2005Q3

REPORT INFORMATION
  Report Type: 
  Country: None (occurrence: None)
  Receive Date: 20050826
  Receipt Date: 20050815
  Transmission Date: 20060218
  Serious: Yes (Other)
  Sender: FDA-Public Use
  Company Number: 2005117622

PATIENT
  Age: 43 Year
  Sex: Female

DRUGS (1)
  1. PREDNISONE [Suspect]
     Indication: ANAEMIA HAEMOLYTIC AUTOIMMUNE

REACTIONS (6)
  - EYELID OEDEMA [None]
  - EYELID PTOSIS [None]
  - LACRIMAL DISORDER [None]
  - LYMPHADENOPATHY [None]
  - SOFT TISSUE DISORDER [None]
  - VISUAL ACUITY REDUCED [None]
